FAERS Safety Report 11985597 (Version 1)
Quarter: 2016Q1

REPORT INFORMATION
  Report Type: Report from Study
  Country: US (occurrence: US)
  Receive Date: 20160201
  Receipt Date: 20160201
  Transmission Date: 20160526
  Serious: Yes (Hospitalization, Other)
  Sender: FDA-Public Use
  Company Number: US-GILEAD-2016-0195482

PATIENT
  Age: 77 Year
  Sex: Male

DRUGS (2)
  1. RANOLAZINE [Suspect]
     Active Substance: RANOLAZINE
     Dosage: 500 MG, UNK
     Route: 048
     Dates: start: 2011
  2. RANOLAZINE [Suspect]
     Active Substance: RANOLAZINE
     Indication: ANGINA PECTORIS
     Dosage: 1000 MG, UNK
     Route: 048
     Dates: start: 2011

REACTIONS (8)
  - Stent placement [Unknown]
  - Fall [Unknown]
  - Arthralgia [Unknown]
  - Wrist fracture [Unknown]
  - Hypoacusis [Not Recovered/Not Resolved]
  - Spinal operation [Recovered/Resolved]
  - Thrombosis [Unknown]
  - Dizziness [Unknown]

NARRATIVE: CASE EVENT DATE: 2011
